APPROVED DRUG PRODUCT: AMIKACIN SULFATE
Active Ingredient: AMIKACIN SULFATE
Strength: EQ 250MG BASE/ML
Dosage Form/Route: INJECTABLE;INJECTION
Application: A063169 | Product #001
Applicant: IGI LABORATORIES INC
Approved: Dec 14, 1995 | RLD: No | RS: No | Type: DISCN